FAERS Safety Report 18319073 (Version 2)
Quarter: 2020Q3

REPORT INFORMATION
  Report Type: Spontaneous
  Country: IT (occurrence: IT)
  Receive Date: 20200928
  Receipt Date: 20200930
  Transmission Date: 20201103
  Serious: Yes (Death)
  Sender: FDA-Public Use
  Company Number: IT-TEVA-2020-IT-1831826

PATIENT
  Age: 65 Year
  Sex: Female

DRUGS (3)
  1. CARDIRENE 100 MG [Concomitant]
     Active Substance: ASPIRIN LYSINE
     Indication: ANTIPLATELET THERAPY
     Dosage: 1 DOSAGE FORMS
     Route: 048
  2. DIAZEPAM. [Suspect]
     Active Substance: DIAZEPAM
     Indication: DRUG ABUSE
     Dosage: 20 ML
     Route: 048
     Dates: start: 20180321, end: 20180321
  3. RANITIDINE. [Concomitant]
     Active Substance: RANITIDINE
     Indication: GASTRITIS
     Dosage: 300 MG
     Route: 048

REACTIONS (3)
  - Sopor [Fatal]
  - Loss of consciousness [Fatal]
  - Drug abuse [Fatal]

NARRATIVE: CASE EVENT DATE: 20180321
